FAERS Safety Report 5300248-8 (Version None)
Quarter: 2007Q2

REPORT INFORMATION
  Report Type: 
  Country: None (occurrence: None)
  Receive Date: 20070411
  Receipt Date: 20070330
  Transmission Date: 20071010
  Serious: Yes (Death)
  Sender: FDA-Public Use
  Company Number: WAES 0704USA01054

PATIENT
  Age: 81 Year
  Sex: Female

DRUGS (2)
  1. STROMECTOL [Suspect]
     Indication: ACARODERMATITIS
     Dosage: 6 MG/DAILY PO
     Route: 048
     Dates: start: 20060905, end: 20060905
  2. DAIKENCHUTO [Concomitant]

REACTIONS (1)
  - DEATH [None]
